FAERS Safety Report 9790790 (Version 2)
Quarter: 2014Q1

REPORT INFORMATION
  Report Type: Spontaneous
  Country: JP (occurrence: JP)
  Receive Date: 20131231
  Receipt Date: 20140122
  Transmission Date: 20141002
  Serious: Yes (Hospitalization)
  Sender: FDA-Public Use
  Company Number: JP-PFIZER INC-2013371005

PATIENT
  Age: 63 Year
  Sex: Female

DRUGS (6)
  1. SEIBULE [Suspect]
     Indication: TYPE 2 DIABETES MELLITUS
     Dosage: 150 MG, 3X/DAY
     Route: 048
     Dates: start: 20131204, end: 20131217
  2. JANUVIA [Suspect]
     Indication: TYPE 2 DIABETES MELLITUS
     Dosage: 50 MG, UNK
     Route: 048
     Dates: start: 20130826, end: 20131217
  3. CRESTOR [Concomitant]
     Dosage: UNK
     Dates: start: 20130729
  4. BETANIS [Concomitant]
     Indication: GENITAL CANDIDIASIS
     Dosage: UNK
     Dates: start: 20120228
  5. BETANIS [Concomitant]
     Indication: HYPERTONIC BLADDER
  6. TRESIBA [Concomitant]
     Indication: TYPE 2 DIABETES MELLITUS
     Dosage: UNK
     Dates: start: 20130925

REACTIONS (1)
  - Urticaria [Recovered/Resolved]
